FAERS Safety Report 23339390 (Version 1)
Quarter: 2023Q4

REPORT INFORMATION
  Report Type: Spontaneous
  Country: BG (occurrence: BG)
  Receive Date: 20231226
  Receipt Date: 20231226
  Transmission Date: 20240110
  Serious: Yes (Hospitalization, Disabling, Other)
  Sender: FDA-Public Use
  Company Number: None

PATIENT
  Age: 86 Year
  Sex: Male

DRUGS (10)
  1. BISOPROLOL FUMARATE [Suspect]
     Active Substance: BISOPROLOL FUMARATE
     Indication: Product used for unknown indication
     Dosage: 2 TIMES HALF A TABLET FROM 10 YEARS
     Route: 048
     Dates: start: 20170615, end: 20230816
  2. DIGOXIN [Suspect]
     Active Substance: DIGOXIN
     Indication: Product used for unknown indication
     Dosage: 1 TIME DAILY HALF A TABLET
     Route: 048
  3. ESOMEPRAZOLE [Suspect]
     Active Substance: ESOMEPRAZOLE
     Indication: Product used for unknown indication
     Dosage: ONCE DAILY HALF A TABLET
     Route: 048
  4. ELIQUIS [Suspect]
     Active Substance: APIXABAN
     Indication: Product used for unknown indication
     Dosage: 2 TIMES HALF A TABLET FROM 2/3 YEARS
     Route: 048
  5. QUETIAPINE FUMARATE [Suspect]
     Active Substance: QUETIAPINE FUMARATE
     Indication: Product used for unknown indication
     Dosage: QUETIAPINE 25 MG: IN THE EVENING , ONE TO 2 TABLETS, EVERY 2 DAYS / FROM 5-6 YEARS
     Route: 048
  6. BROMAZEPAM [Suspect]
     Active Substance: BROMAZEPAM
     Indication: Product used for unknown indication
     Dosage: BROMAZEPAM 3 MG: IN THE EVENING ONE OR HALF A TABLET, EVERY 2 DAYS / FROM 30 YEARS
     Route: 048
  7. OLANZAPINE [Suspect]
     Active Substance: OLANZAPINE
     Indication: Product used for unknown indication
     Dosage: HALF A TABLET DAILY FROM 6 YEARS
     Route: 048
  8. PREGABALIN [Suspect]
     Active Substance: PREGABALIN
     Indication: Product used for unknown indication
     Dosage: ONE TABLET DAILY FROM 6 YEARS
     Route: 065
  9. VENLAFAXINE HYDROCHLORIDE [Suspect]
     Active Substance: VENLAFAXINE HYDROCHLORIDE
     Indication: Product used for unknown indication
     Dosage: 2 TIMES ONE TABLET DAILY / FROM 6 YEARS
     Route: 048
  10. ZOPICLONE [Suspect]
     Active Substance: ZOPICLONE
     Indication: Product used for unknown indication
     Dosage: ONE HALF TO ONE TABLET EVERY TWO DAYS / FROM 1 YEAR.
     Route: 048

REACTIONS (3)
  - Basal cell carcinoma [Recovered/Resolved with Sequelae]
  - Dysplastic naevus [Recovered/Resolved with Sequelae]
  - Adenoma benign [Recovered/Resolved with Sequelae]
